FAERS Safety Report 8906323 (Version 1)
Quarter: 2012Q4

REPORT INFORMATION
  Report Type: Spontaneous
  Country: US (occurrence: None)
  Receive Date: 20121109
  Receipt Date: 20121109
  Transmission Date: 20130627
  Serious: Yes (Hospitalization)
  Sender: FDA-Public Use
  Company Number: None

PATIENT
  Age: 21 Year
  Sex: Female
  Weight: 60.9 kg

DRUGS (2)
  1. LAMOTRIGINE [Suspect]
     Indication: BIPOLAR DISORDER
     Dosage: 25mg, daily x 14 days, po
     Route: 048
     Dates: start: 20120705, end: 20120921
  2. LAMOTRIGINE [Suspect]
     Indication: BIPOLAR DISORDER
     Route: 048

REACTIONS (9)
  - Abdominal pain [None]
  - Nausea [None]
  - Vomiting [None]
  - Drug reaction with eosinophilia and systemic symptoms [None]
  - Drug reaction with eosinophilia and systemic symptoms [None]
  - Hepatic function abnormal [None]
  - Pyrexia [None]
  - Blood bilirubin increased [None]
  - Autoimmune hepatitis [None]
